FAERS Safety Report 8030448-8 (Version None)
Quarter: 2012Q1

REPORT INFORMATION
  Report Type: 
  Country: None (occurrence: None)
  Receive Date: 20120109
  Receipt Date: 20120105
  Transmission Date: 20120608
  Serious: Yes (Hospitalization)
  Sender: FDA-Public Use
  Company Number: PHHY2012JP001323

PATIENT

DRUGS (6)
  1. URIEF [Concomitant]
     Route: 048
  2. ZOLADEX [Concomitant]
  3. PROSTAL [Concomitant]
     Route: 048
  4. CATLEP [Concomitant]
  5. CONIEL [Concomitant]
     Route: 048
  6. ZOMETA [Suspect]
     Indication: METASTASES TO BONE
     Dosage: 4 MG, PER ADMINISTRATION
     Route: 041
     Dates: start: 20100601, end: 20110801

REACTIONS (2)
  - OSTEONECROSIS OF JAW [None]
  - PAIN IN JAW [None]
